FAERS Safety Report 23294606 (Version 2)
Quarter: 2023Q4

REPORT INFORMATION
  Report Type: Report from Study
  Country: US (occurrence: US)
  Receive Date: 20231213
  Receipt Date: 20231219
  Transmission Date: 20240109
  Serious: Yes (Hospitalization)
  Sender: FDA-Public Use
  Company Number: US-Eisai-EC-2023-154835

PATIENT
  Age: 57 Year

DRUGS (2)
  1. LENVATINIB [Suspect]
     Active Substance: LENVATINIB
     Indication: Thyroid cancer metastatic
     Dosage: UNKNOWN DOSE AND FREQUENCY
     Route: 048
  2. PEMBROLIZUMAB [Suspect]
     Active Substance: PEMBROLIZUMAB
     Indication: Thyroid cancer metastatic
     Dosage: UNKNOWN DOSE AND FREQUENCY
     Route: 042

REACTIONS (2)
  - Cholecystitis [Unknown]
  - Cholelithiasis [Unknown]

NARRATIVE: CASE EVENT DATE: 20231204
